FAERS Safety Report 24391187 (Version 1)
Quarter: 2024Q4

REPORT INFORMATION
  Report Type: Spontaneous
  Country: IN (occurrence: IN)
  Receive Date: 20241003
  Receipt Date: 20241003
  Transmission Date: 20250114
  Serious: Yes (Hospitalization, Other)
  Sender: NOVITIUM PHARMA
  Company Number: IN-NOVITIUMPHARMA-2024INNVP02084

PATIENT
  Sex: Female

DRUGS (16)
  1. NAPROXEN [Suspect]
     Active Substance: NAPROXEN
     Indication: Migraine
     Dates: start: 202201
  2. NAPROXEN [Suspect]
     Active Substance: NAPROXEN
     Dates: start: 2022
  3. SUMATRIPTAN [Concomitant]
     Active Substance: SUMATRIPTAN
     Indication: Migraine
     Dates: start: 202201
  4. TOPIRAMATE [Concomitant]
     Active Substance: TOPIRAMATE
     Indication: Migraine
     Dates: start: 2022
  5. TRAMADOL [Concomitant]
     Active Substance: TRAMADOL
     Indication: Migraine
     Dosage: 50 -100MG
     Dates: start: 2022
  6. RIZATRIPTAN [Concomitant]
     Active Substance: RIZATRIPTAN
     Indication: Migraine
     Dates: start: 2022
  7. ERGOTAMINE [Concomitant]
     Active Substance: CAFFEINE\ERGOTAMINE\ERGOTAMINE TARTRATE
     Indication: Migraine
     Dates: start: 2022
  8. AMITRIPTYLINE [Concomitant]
     Active Substance: AMITRIPTYLINE
     Indication: Migraine
  9. VALPROATE [Concomitant]
     Active Substance: VALPROIC ACID
     Indication: Migraine
  10. IBUPROFEN [Concomitant]
     Active Substance: IBUPROFEN
     Indication: Migraine
  11. DICLOFENAC [Concomitant]
     Active Substance: DICLOFENAC
     Indication: Migraine
  12. PROPRANOLOL [Concomitant]
     Active Substance: PROPRANOLOL HYDROCHLORIDE
     Indication: Migraine
  13. FLUNARIZINE [Concomitant]
     Active Substance: FLUNARIZINE
     Indication: Migraine
  14. Caffeine/Ergotamine/Paracetamol/Prochlorperazine [Concomitant]
     Indication: Migraine
  15. Naproxen/Sumatriptan [Concomitant]
     Indication: Migraine
     Dosage: 500/85MG
  16. PREDNISOLONE [Concomitant]
     Active Substance: PREDNISOLONE
     Indication: Migraine

REACTIONS (1)
  - Serotonin syndrome [Recovered/Resolved]
